FAERS Safety Report 5016029-9 (Version None)
Quarter: 2006Q2

REPORT INFORMATION
  Report Type: 
  Country: None (occurrence: None)
  Receive Date: 20060414
  Receipt Date: 20060314
  Transmission Date: 20061013
  Serious: No
  Sender: FDA-Public Use
  Company Number: 2006SP001220

PATIENT
  Age: 72 Year
  Sex: Female
  Weight: 66.2252 kg

DRUGS (6)
  1. LUNESTA [Suspect]
     Indication: INSOMNIA
     Dosage: 3 MG;PRN; ORAL
     Route: 048
     Dates: start: 20050801
  2. AMBIEN [Concomitant]
  3. SIMVASTATIN [Concomitant]
  4. VASOTEC [Concomitant]
  5. ZETIA [Concomitant]
  6. COUMADIN [Concomitant]

REACTIONS (3)
  - ASTHENOPIA [None]
  - DRUG INEFFECTIVE [None]
  - INSOMNIA [None]
